FAERS Safety Report 4939258-9 (Version None)
Quarter: 2006Q1

REPORT INFORMATION
  Report Type: 
  Country: None (occurrence: None)
  Receive Date: 20060310
  Receipt Date: 20060304
  Transmission Date: 20060701
  Serious: Yes (Life-Threatening, Hospitalization)
  Sender: FDA-Public Use
  Company Number: PHRM2006FR00955

PATIENT
  Age: 74 Year
  Sex: Female

DRUGS (3)
  1. COTAREG [Suspect]
     Indication: HYPERTENSION
     Dosage: 1 DF, QD
     Route: 048
     Dates: start: 20050919
  2. COTAREG [Suspect]
     Route: 048
     Dates: start: 20060103
  3. LIPANTHYL [Concomitant]
     Indication: HYPERCHOLESTEROLAEMIA
     Route: 048

REACTIONS (10)
  - ACUTE ABDOMEN [None]
  - BLOOD AMYLASE INCREASED [None]
  - BLOOD CHOLESTEROL INCREASED [None]
  - BLOOD URIC ACID INCREASED [None]
  - CREATININE RENAL CLEARANCE DECREASED [None]
  - FATIGUE [None]
  - LIPASE INCREASED [None]
  - LOW DENSITY LIPOPROTEIN INCREASED [None]
  - PANCREATITIS NECROTISING [None]
  - WEIGHT DECREASED [None]
